FAERS Safety Report 9178102 (Version 1)
Quarter: 2013Q1

REPORT INFORMATION
  Report Type: Spontaneous
  Country: US (occurrence: US)
  Receive Date: 20130321
  Receipt Date: 20130321
  Transmission Date: 20140127
  Serious: Yes (Other)
  Sender: FDA-Public Use
  Company Number: US-PFIZER INC-2013087775

PATIENT
  Sex: Female

DRUGS (2)
  1. AZITHROMYCIN [Suspect]
     Dosage: UNK
  2. ZITHROMAX [Suspect]
     Dosage: UNK

REACTIONS (2)
  - Atrial fibrillation [Unknown]
  - Appetite disorder [Unknown]
